FAERS Safety Report 11514415 (Version 1)
Quarter: 2015Q3

REPORT INFORMATION
  Report Type: Spontaneous
  Country: US (occurrence: US)
  Receive Date: 20150916
  Receipt Date: 20150916
  Transmission Date: 20151125
  Serious: No
  Sender: FDA-Public Use
  Company Number: US-PFIZER INC-2015305353

PATIENT
  Age: 33 Year
  Sex: Female
  Weight: 95 kg

DRUGS (2)
  1. LACTOSE [Suspect]
     Active Substance: LACTOSE
     Dosage: UNK
     Dates: start: 20150909, end: 20150909
  2. AZITHROMYCIN [Suspect]
     Active Substance: AZITHROMYCIN ANHYDROUS
     Indication: EAR INFECTION
     Dosage: 2 DF, UNK
     Route: 048
     Dates: start: 20150909, end: 20150909

REACTIONS (8)
  - Vomiting [Recovered/Resolved]
  - Flatulence [Recovered/Resolved]
  - Diarrhoea [Recovered/Resolved]
  - Abdominal pain upper [Recovered/Resolved]
  - Reaction to drug excipients [Unknown]
  - Nausea [Not Recovered/Not Resolved]
  - Fatigue [Not Recovered/Not Resolved]
  - Dizziness [Not Recovered/Not Resolved]

NARRATIVE: CASE EVENT DATE: 20150909
